FAERS Safety Report 4586513-0 (Version None)
Quarter: 2005Q1

REPORT INFORMATION
  Report Type: 
  Country: None (occurrence: None)
  Receive Date: 20050218
  Receipt Date: 20050208
  Transmission Date: 20050727
  Serious: Yes (Other)
  Sender: FDA-Public Use
  Company Number: AU-NOVOPROD-242168

PATIENT
  Sex: Female

DRUGS (2)
  1. ACTRAPID [Suspect]
     Indication: DIABETES MELLITUS INSULIN-DEPENDENT
  2. PROTAPHANE PENFILL [Suspect]
     Indication: DIABETES MELLITUS INSULIN-DEPENDENT

REACTIONS (4)
  - ANAPHYLACTIC SHOCK [None]
  - CELLULITIS [None]
  - INFLAMMATION [None]
  - INJECTION SITE INFLAMMATION [None]
